FAERS Safety Report 15789747 (Version 1)
Quarter: 2019Q1

REPORT INFORMATION
  Report Type: Spontaneous
  Country: DE (occurrence: DE)
  Receive Date: 20190104
  Receipt Date: 20190104
  Transmission Date: 20190417
  Serious: Yes (Other)
  Sender: FDA-Public Use
  Company Number: DE-ASTRAZENECA-2018SF71077

PATIENT
  Age: 49 Year
  Sex: Female

DRUGS (12)
  1. OLAPARIB. [Suspect]
     Active Substance: OLAPARIB
     Indication: MALIGNANT PERITONEAL NEOPLASM
     Dosage: 200.0MG ONCE/SINGLE ADMINISTRATION
     Route: 048
  2. OLAPARIB. [Suspect]
     Active Substance: OLAPARIB
     Indication: MALIGNANT PERITONEAL NEOPLASM
     Dosage: 400.0MG ONCE/SINGLE ADMINISTRATION
     Route: 048
  3. OLAPARIB. [Suspect]
     Active Substance: OLAPARIB
     Indication: MALIGNANT PERITONEAL NEOPLASM
     Route: 048
  4. OLAPARIB. [Suspect]
     Active Substance: OLAPARIB
     Indication: MALIGNANT PERITONEAL NEOPLASM
     Dosage: 50.0MG ONCE/SINGLE ADMINISTRATION
     Route: 048
  5. OLAPARIB. [Suspect]
     Active Substance: OLAPARIB
     Indication: MALIGNANT PERITONEAL NEOPLASM
     Dosage: 200.0MG ONCE/SINGLE ADMINISTRATION
     Route: 048
  6. OLAPARIB. [Suspect]
     Active Substance: OLAPARIB
     Indication: MALIGNANT PERITONEAL NEOPLASM
     Dosage: 25.0MG ONCE/SINGLE ADMINISTRATION
     Route: 048
  7. OLAPARIB. [Suspect]
     Active Substance: OLAPARIB
     Indication: MALIGNANT PERITONEAL NEOPLASM
     Dosage: 200.0MG ONCE/SINGLE ADMINISTRATION
     Route: 048
  8. OLAPARIB. [Suspect]
     Active Substance: OLAPARIB
     Indication: MALIGNANT PERITONEAL NEOPLASM
     Dosage: 200.0MG ONCE/SINGLE ADMINISTRATION
     Route: 048
  9. OLAPARIB. [Suspect]
     Active Substance: OLAPARIB
     Indication: MALIGNANT PERITONEAL NEOPLASM
     Dosage: 400.0MG ONCE/SINGLE ADMINISTRATION
     Route: 048
  10. OLAPARIB. [Suspect]
     Active Substance: OLAPARIB
     Indication: MALIGNANT PERITONEAL NEOPLASM
     Dosage: 100.0MG ONCE/SINGLE ADMINISTRATION
     Route: 048
  11. OLAPARIB. [Suspect]
     Active Substance: OLAPARIB
     Indication: MALIGNANT PERITONEAL NEOPLASM
     Dosage: 12.5MG ONCE/SINGLE ADMINISTRATION
     Route: 048
  12. OLAPARIB. [Suspect]
     Active Substance: OLAPARIB
     Indication: MALIGNANT PERITONEAL NEOPLASM
     Dosage: 300.0MG ONCE/SINGLE ADMINISTRATION
     Route: 048

REACTIONS (5)
  - Type I hypersensitivity [Recovered/Resolved]
  - Angioedema [Unknown]
  - Urticaria [Recovered/Resolved]
  - Intentional product use issue [Unknown]
  - Pruritus [Recovered/Resolved]
